FAERS Safety Report 22260534 (Version 3)
Quarter: 2023Q2

REPORT INFORMATION
  Report Type: Spontaneous
  Country: FR (occurrence: FR)
  Receive Date: 20230427
  Receipt Date: 20230510
  Transmission Date: 20230722
  Serious: Yes (Life-Threatening, Other)
  Sender: FDA-Public Use
  Company Number: FR-NOVPHSZ-PHHY2018FR056691

PATIENT
  Age: 45 Year
  Sex: Female

DRUGS (2)
  1. MOXIFLOXACIN [Suspect]
     Active Substance: MOXIFLOXACIN
     Indication: Pneumonia pneumococcal
     Dosage: UNK, CUMULATIVE DOSE OF 6 MG
     Route: 065
  2. MOXIFLOXACIN [Suspect]
     Active Substance: MOXIFLOXACIN
     Indication: Interstitial lung disease

REACTIONS (14)
  - Anaphylactic shock [Unknown]
  - Anaphylactic reaction [Recovered/Resolved]
  - Pyrexia [Unknown]
  - Angioedema [Unknown]
  - Vasculitis [Unknown]
  - Eosinophilia [Unknown]
  - Hepatitis [Unknown]
  - Cytopenia [Unknown]
  - Bronchospasm [Unknown]
  - Renal disorder [Unknown]
  - Serum sickness [Unknown]
  - Urticaria [Recovered/Resolved]
  - Cough [Recovered/Resolved]
  - Respiratory disorder [Recovered/Resolved]
